FAERS Safety Report 22061937 (Version 5)
Quarter: 2023Q2

REPORT INFORMATION
  Report Type: Report from Study
  Country: US (occurrence: US)
  Receive Date: 20230304
  Receipt Date: 20230616
  Transmission Date: 20230722
  Serious: No
  Sender: FDA-Public Use
  Company Number: US-002147023-NVSC2023US050183

PATIENT
  Sex: Male

DRUGS (1)
  1. ENTRESTO [Suspect]
     Active Substance: SACUBITRIL\VALSARTAN
     Indication: Product used for unknown indication
     Dosage: 1 DOSAGE FORM, BID (24/26MG)
     Route: 048
     Dates: start: 202204

REACTIONS (9)
  - Pain in extremity [Recovering/Resolving]
  - Fluid retention [Recovering/Resolving]
  - Pollakiuria [Recovering/Resolving]
  - Weight fluctuation [Unknown]
  - Hypersensitivity [Unknown]
  - Paranasal sinus hypersecretion [Unknown]
  - Cough [Unknown]
  - Dizziness [Recovering/Resolving]
  - Hypotension [Recovering/Resolving]
